FAERS Safety Report 5117365-8 (Version None)
Quarter: 2006Q3

REPORT INFORMATION
  Report Type: 
  Country: None (occurrence: None)
  Receive Date: 20060926
  Receipt Date: 20060907
  Transmission Date: 20061208
  Serious: Yes (Other)
  Sender: FDA-Public Use
  Company Number: US200609001788

PATIENT
  Age: 64 Year
  Sex: Female

DRUGS (6)
  1. CYMBALTA [Suspect]
     Indication: NEUROPATHY
     Dosage: 30 MG,
     Dates: start: 20060801
  2. NEURONTIN [Concomitant]
  3. TOPROL-XL [Concomitant]
  4. KLONOPIN [Concomitant]
  5. SINGULAIR [Concomitant]
  6. MOTRIN [Concomitant]

REACTIONS (2)
  - ASTHENIA [None]
  - BLOOD PRESSURE DIASTOLIC DECREASED [None]
